FAERS Safety Report 6677519-6 (Version None)
Quarter: 2010Q2

REPORT INFORMATION
  Report Type: 
  Country: None (occurrence: None)
  Receive Date: 20100412
  Receipt Date: 20100121
  Transmission Date: 20101027
  Serious: No
  Sender: FDA-Public Use
  Company Number: CA-ALEXION-A201000074

PATIENT
  Sex: Male

DRUGS (9)
  1. SOLIRIS [Suspect]
     Indication: PAROXYSMAL NOCTURNAL HAEMOGLOBINURIA
     Dosage: 600 MG,QW X4
     Route: 042
     Dates: start: 20091014
  2. SOLIRIS [Suspect]
     Dosage: 900 MG, Q2W
     Route: 042
  3. VITAMIN B                          /90046501/ [Concomitant]
     Dosage: UNK
     Route: 048
  4. COUMADIN [Concomitant]
     Dosage: UNK
     Route: 048
  5. OMEPRAZOLE [Concomitant]
     Dosage: UNK
     Route: 048
  6. FOLIC ACID [Concomitant]
     Dosage: UNK
     Route: 048
  7. IRON [Concomitant]
     Dosage: UNK
     Route: 048
  8. CALCIUM [Concomitant]
     Dosage: UNK
     Route: 048
  9. FOSAMAX [Concomitant]
     Dosage: QW
     Route: 048

REACTIONS (3)
  - ARTHRALGIA [None]
  - JOINT STIFFNESS [None]
  - PAIN IN EXTREMITY [None]
